FAERS Safety Report 19857928 (Version 1)
Quarter: 2021Q3

REPORT INFORMATION
  Report Type: Spontaneous
  Country: CZ (occurrence: CZ)
  Receive Date: 20210920
  Receipt Date: 20210920
  Transmission Date: 20211014
  Serious: Yes (Hospitalization, Other)
  Sender: FDA-Public Use
  Company Number: CZ-OTSUKA-2021_031977

PATIENT
  Age: 34 Year
  Sex: Male
  Weight: 117 kg

DRUGS (14)
  1. OLANZAPINE PAMOATE [Suspect]
     Active Substance: OLANZAPINE PAMOATE
     Dosage: UNK,
     Route: 065
  2. BREXPIPRAZOLE [Concomitant]
     Active Substance: BREXPIPRAZOLE
     Dosage: 2 MILLIGRAM, OD (INITIAL DOSE)
     Route: 065
  3. CLOZAPINE. [Concomitant]
     Active Substance: CLOZAPINE
     Indication: SCHIZOPHRENIA
     Dosage: UNK
     Route: 065
  4. ARIPIPRAZOLE. [Suspect]
     Active Substance: ARIPIPRAZOLE
     Indication: SCHIZOPHRENIA
     Dosage: 30 MILLIGRAM
     Route: 065
  5. OLANZAPINE. [Suspect]
     Active Substance: OLANZAPINE
     Dosage: UNK,
     Route: 065
  6. OLANZAPINE PAMOATE [Suspect]
     Active Substance: OLANZAPINE PAMOATE
     Dosage: 105 MG, UNKNOWN
     Route: 065
  7. OLANZAPINE PAMOATE [Suspect]
     Active Substance: OLANZAPINE PAMOATE
     Indication: SCHIZOPHRENIA
     Dosage: GRADUALLY REDUCED THE DOSE TO 300 MILLIGRAM
     Route: 030
  8. OLANZAPINE PAMOATE [Suspect]
     Active Substance: OLANZAPINE PAMOATE
     Dosage: 407 MILLIGRAM DEPOT 1X PER MONTH AND AND GRADUALLY REDUCED THE DOSE TO 300 MG AND FINALLY 210 MIL...
     Route: 030
     Dates: start: 201504
  9. SERTINDOLE [Concomitant]
     Active Substance: SERTINDOLE
     Indication: SCHIZOPHRENIA
     Dosage: UNK
     Route: 065
  10. QUETIAPINE. [Concomitant]
     Active Substance: QUETIAPINE
     Indication: SCHIZOPHRENIA
     Dosage: UNK
     Route: 065
  11. OLANZAPINE. [Suspect]
     Active Substance: OLANZAPINE
     Indication: SCHIZOPHRENIA
     Dosage: UNK,
     Route: 065
  12. OLANZAPINE. [Suspect]
     Active Substance: OLANZAPINE
     Dosage: 20 MG, UNKNOWN
     Route: 065
  13. OLANZAPINE PAMOATE [Suspect]
     Active Substance: OLANZAPINE PAMOATE
     Dosage: 210 MG, MONTHLY (1/M)
     Route: 030
     Dates: end: 2018
  14. BREXPIPRAZOLE [Concomitant]
     Active Substance: BREXPIPRAZOLE
     Indication: SCHIZOPHRENIA
     Dosage: 1 MILLIGRAM, QW (AFTER EVERY WEEK)
     Route: 065

REACTIONS (4)
  - Treatment noncompliance [Unknown]
  - Drug ineffective [Unknown]
  - Weight increased [Recovering/Resolving]
  - Schizophrenia [Unknown]
